FAERS Safety Report 22302358 (Version 1)
Quarter: 2023Q2

REPORT INFORMATION
  Report Type: Spontaneous
  Country: US (occurrence: US)
  Receive Date: 20230510
  Receipt Date: 20230510
  Transmission Date: 20230721
  Serious: Yes (Hospitalization)
  Sender: FDA-Public Use
  Company Number: US-drreddys-LIT/USA/23/0162354

PATIENT
  Sex: Female
  Weight: 3.3 kg

DRUGS (10)
  1. AMIODARONE HYDROCHLORIDE [Suspect]
     Active Substance: AMIODARONE HYDROCHLORIDE
     Indication: Atrial tachycardia
     Dosage: 7 ?G/KG/MIN
     Route: 042
  2. AMIODARONE HYDROCHLORIDE [Suspect]
     Active Substance: AMIODARONE HYDROCHLORIDE
     Dosage: SUBSEQUENTLY REDUCED TO 3.5 ?G/KG/MIN ON POD 12
     Route: 042
  3. AMIODARONE HYDROCHLORIDE [Suspect]
     Active Substance: AMIODARONE HYDROCHLORIDE
     Dosage: AT 1 MG/KG (10 BOLUSES)
     Route: 040
  4. AMIODARONE HYDROCHLORIDE [Suspect]
     Active Substance: AMIODARONE HYDROCHLORIDE
     Dosage: INCREASED TO 7 ?G/KG/MIN
     Route: 042
  5. PROCAINAMIDE HYDROCHLORIDE [Suspect]
     Active Substance: PROCAINAMIDE HYDROCHLORIDE
     Indication: Product used for unknown indication
  6. PROPRANOLOL [Suspect]
     Active Substance: PROPRANOLOL HYDROCHLORIDE
     Indication: Atrial tachycardia
     Dosage: 1 MG/KG/DAY DIVIDED EVERY 6 HOURS ON POD 11
  7. ESMOLOL [Suspect]
     Active Substance: ESMOLOL HYDROCHLORIDE
     Indication: Atrial tachycardia
     Route: 042
  8. ESMOLOL [Suspect]
     Active Substance: ESMOLOL HYDROCHLORIDE
     Route: 042
  9. IVABRADINE [Suspect]
     Active Substance: IVABRADINE
     Indication: Atrial tachycardia
  10. IVABRADINE [Suspect]
     Active Substance: IVABRADINE

REACTIONS (10)
  - Tricuspid valve incompetence [Unknown]
  - Chronotropic incompetence [Unknown]
  - Condition aggravated [Unknown]
  - Hypoxia [Unknown]
  - Heart rate decreased [Unknown]
  - Hypotension [Unknown]
  - Atrial tachycardia [Unknown]
  - Cardiac failure [Unknown]
  - Sinus bradycardia [Unknown]
  - Drug ineffective [Unknown]
